FAERS Safety Report 25087593 (Version 1)
Quarter: 2025Q1

REPORT INFORMATION
  Report Type: Spontaneous
  Country: US (occurrence: US)
  Receive Date: 20250318
  Receipt Date: 20250318
  Transmission Date: 20250409
  Serious: Yes (Life-Threatening, Hospitalization, Other)
  Sender: SANDOZ
  Company Number: US-SANDOZ-SDZ2025US016007

PATIENT

DRUGS (9)
  1. ASCIMINIB [Suspect]
     Active Substance: ASCIMINIB
     Indication: Product used for unknown indication
     Route: 065
     Dates: end: 20250218
  2. ASCIMINIB [Suspect]
     Active Substance: ASCIMINIB
     Route: 065
     Dates: start: 20250304
  3. AZITHROMYCIN [Suspect]
     Active Substance: AZITHROMYCIN
     Indication: Product used for unknown indication
     Dosage: 500 MG, QD
     Route: 048
  4. CEFAZOLIN [Suspect]
     Active Substance: CEFAZOLIN
     Dosage: 2 G, Q12H
     Route: 042
  5. CEFAZOLIN [Suspect]
     Active Substance: CEFAZOLIN
     Indication: Product used for unknown indication
     Dosage: 2 G, Q8H
     Route: 042
     Dates: start: 20250221
  6. CEFTRIAXONE [Suspect]
     Active Substance: CEFTRIAXONE
     Indication: Product used for unknown indication
     Route: 042
  7. CEFEPIME [Suspect]
     Active Substance: CEFEPIME HYDROCHLORIDE
     Indication: Product used for unknown indication
     Route: 065
  8. GUAIFENESIN [Suspect]
     Active Substance: GUAIFENESIN
     Indication: Product used for unknown indication
     Dosage: 200 MG, Q4H
     Route: 048
  9. GUAIFENESIN [Suspect]
     Active Substance: GUAIFENESIN
     Dosage: 300 MG, Q4H
     Route: 048

REACTIONS (12)
  - Pneumonia [Unknown]
  - Myalgia [Unknown]
  - Acute kidney injury [Unknown]
  - Muscular weakness [Unknown]
  - Sepsis [Unknown]
  - Muscle spasms [Recovering/Resolving]
  - Arthralgia [Unknown]
  - Neuralgia [Unknown]
  - Hypotension [Unknown]
  - Hypokinesia [Unknown]
  - Muscle spasticity [Recovering/Resolving]
  - Dyspnoea [Unknown]

NARRATIVE: CASE EVENT DATE: 20250101
